FAERS Safety Report 16571888 (Version 1)
Quarter: 2019Q3

REPORT INFORMATION
  Report Type: Spontaneous
  Country: US (occurrence: US)
  Receive Date: 20190713
  Receipt Date: 20190713
  Transmission Date: 20191004
  Serious: Yes (Disabling)
  Sender: FDA-Public Use
  Company Number: None

PATIENT
  Age: 44 Year
  Sex: Female
  Weight: 54.9 kg

DRUGS (2)
  1. OMEPRAZOLE 20 MG CAPSULES [Suspect]
     Active Substance: OMEPRAZOLE
     Indication: GASTROOESOPHAGEAL REFLUX DISEASE
     Dosage: ?          QUANTITY:1 CAPSULE(S);?
     Route: 048
     Dates: start: 20140101
  2. MAGNESIUM 250 MG ALDI [Concomitant]
     Active Substance: MINERALS\VITAMINS

REACTIONS (4)
  - Photosensitivity reaction [None]
  - Rash papular [None]
  - Swelling [None]
  - Rash vesicular [None]

NARRATIVE: CASE EVENT DATE: 20190606
